FAERS Safety Report 24750453 (Version 1)
Quarter: 2024Q4

REPORT INFORMATION
  Report Type: Spontaneous
  Country: JP (occurrence: JP)
  Receive Date: 20241218
  Receipt Date: 20241218
  Transmission Date: 20250114
  Serious: Yes (Other)
  Sender: ALEXION PHARMACEUTICALS
  Company Number: JP-ASTRAZENECA-230040873_013820_P_1

PATIENT
  Age: 73 Year
  Weight: 62 kg

DRUGS (22)
  1. CALQUENCE [Suspect]
     Active Substance: ACALABRUTINIB
     Indication: Nodal marginal zone B-cell lymphoma recurrent
     Dosage: 100 MILLIGRAM, BID
  2. CALQUENCE [Suspect]
     Active Substance: ACALABRUTINIB
     Indication: Chronic lymphocytic leukaemia recurrent
     Dosage: 100 MILLIGRAM, BID
     Route: 048
  3. CALQUENCE [Suspect]
     Active Substance: ACALABRUTINIB
     Dosage: 100 MILLIGRAM, BID
  4. CALQUENCE [Suspect]
     Active Substance: ACALABRUTINIB
     Dosage: 100 MILLIGRAM, BID
     Route: 048
  5. CALQUENCE [Suspect]
     Active Substance: ACALABRUTINIB
     Indication: Chronic lymphocytic leukaemia recurrent
     Dosage: 100 MILLIGRAM, BID
  6. CALQUENCE [Suspect]
     Active Substance: ACALABRUTINIB
     Dosage: 100 MILLIGRAM, BID
     Route: 048
  7. CALQUENCE [Suspect]
     Active Substance: ACALABRUTINIB
     Dosage: 100 MILLIGRAM, BID
  8. CALQUENCE [Suspect]
     Active Substance: ACALABRUTINIB
     Dosage: 100 MILLIGRAM, BID
     Route: 048
  9. GAZYVA [Suspect]
     Active Substance: OBINUTUZUMAB
     Indication: Chronic lymphocytic leukaemia recurrent
     Route: 041
  10. GAZYVA [Suspect]
     Active Substance: OBINUTUZUMAB
  11. FEBUXOSTAT [Concomitant]
     Active Substance: FEBUXOSTAT
     Indication: Hyperuricaemia
     Route: 048
  12. FEBUXOSTAT [Concomitant]
     Active Substance: FEBUXOSTAT
  13. LANSOPRAZOLE [Concomitant]
     Active Substance: LANSOPRAZOLE
     Indication: Abdominal discomfort
     Route: 048
  14. LANSOPRAZOLE [Concomitant]
     Active Substance: LANSOPRAZOLE
  15. SULFAMETHOXAZOLE\TRIMETHOPRIM [Concomitant]
     Active Substance: SULFAMETHOXAZOLE\TRIMETHOPRIM
     Indication: White blood cell count decreased
     Dosage: TWICE A WEEK
  16. SULFAMETHOXAZOLE\TRIMETHOPRIM [Concomitant]
     Active Substance: SULFAMETHOXAZOLE\TRIMETHOPRIM
     Dosage: TWICE A WEEK
     Route: 048
  17. SULFAMETHOXAZOLE\TRIMETHOPRIM [Concomitant]
     Active Substance: SULFAMETHOXAZOLE\TRIMETHOPRIM
     Dosage: TWICE A WEEK
  18. SULFAMETHOXAZOLE\TRIMETHOPRIM [Concomitant]
     Active Substance: SULFAMETHOXAZOLE\TRIMETHOPRIM
     Dosage: TWICE A WEEK
     Route: 048
  19. VENCLEXTA [Concomitant]
     Active Substance: VENETOCLAX
     Dosage: DOSE UNKNOWN
     Route: 065
  20. VENCLEXTA [Concomitant]
     Active Substance: VENETOCLAX
     Dosage: DOSE UNKNOWN
     Route: 065
  21. VENCLEXTA [Concomitant]
     Active Substance: VENETOCLAX
     Dosage: DOSE UNKNOWN
     Route: 065
  22. VENCLEXTA [Concomitant]
     Active Substance: VENETOCLAX
     Dosage: DOSE UNKNOWN
     Route: 065

REACTIONS (4)
  - Cytopenia [Not Recovered/Not Resolved]
  - Hyperglycaemia [Recovering/Resolving]
  - Diabetes mellitus [Recovering/Resolving]
  - Platelet count decreased [Not Recovered/Not Resolved]
